FAERS Safety Report 21216766 (Version 1)
Quarter: 2022Q3

REPORT INFORMATION
  Report Type: Spontaneous
  Country: CA (occurrence: CA)
  Receive Date: 20220816
  Receipt Date: 20220816
  Transmission Date: 20221027
  Serious: Yes (Other)
  Sender: FDA-Public Use
  Company Number: None

PATIENT
  Age: 49 Year
  Sex: Female

DRUGS (12)
  1. METHOTREXATE [Suspect]
     Active Substance: METHOTREXATE
     Indication: Rheumatoid arthritis
     Route: 065
  2. CANNABIDIOL [Concomitant]
     Active Substance: CANNABIDIOL
  3. HERBALS\TURMERIC [Concomitant]
     Active Substance: HERBALS\TURMERIC
  4. ETANERCEPT [Concomitant]
     Active Substance: ETANERCEPT
     Route: 065
  5. ESOMEPRAZOLE MAGNESIUM\NAPROXEN [Concomitant]
     Active Substance: ESOMEPRAZOLE MAGNESIUM\NAPROXEN
  6. FOLIC ACID [Concomitant]
     Active Substance: FOLIC ACID
     Route: 065
  7. HYDROXYCHLOROQUINE [Concomitant]
     Active Substance: HYDROXYCHLOROQUINE
  8. NAPROXEN [Concomitant]
     Active Substance: NAPROXEN
  9. TOFACITINIB [Concomitant]
     Active Substance: TOFACITINIB
     Indication: Rheumatoid arthritis
     Dosage: TABLET (EXTENDED- RELEASE)?1 EVERY 1 DAYS
     Route: 048
  10. HERBALS [Concomitant]
     Active Substance: HERBALS
  11. ETANERCEPT [Concomitant]
     Active Substance: ETANERCEPT
     Route: 058
  12. FOLIC ACID [Concomitant]
     Active Substance: FOLIC ACID
     Dosage: 1 EVERY 1 DAYS
     Route: 048

REACTIONS (3)
  - Chest pain [Unknown]
  - Rheumatoid arthritis [Unknown]
  - White blood cell count decreased [Unknown]
